FAERS Safety Report 21731932 (Version 1)
Quarter: 2022Q4

REPORT INFORMATION
  Report Type: Spontaneous
  Country: US (occurrence: US)
  Receive Date: 20221215
  Receipt Date: 20221215
  Transmission Date: 20230113
  Serious: No
  Sender: FDA-Public Use
  Company Number: JP-ABBVIE-4181278

PATIENT
  Age: 18 Year
  Sex: Male

DRUGS (1)
  1. HUMIRA [Suspect]
     Active Substance: ADALIMUMAB
     Indication: Product used for unknown indication
     Route: 058

REACTIONS (6)
  - Abdominal pain lower [Unknown]
  - Anal fistula [Unknown]
  - Gastrointestinal wall thickening [Unknown]
  - Colonic fistula [Unknown]
  - Large intestinal stenosis [Unknown]
  - Vomiting [Unknown]
